FAERS Safety Report 9791381 (Version 4)
Quarter: 2014Q2

REPORT INFORMATION
  Report Type: Spontaneous
  Country: JP (occurrence: JP)
  Receive Date: 20140101
  Receipt Date: 20140627
  Transmission Date: 20141212
  Serious: Yes (Life-Threatening)
  Sender: FDA-Public Use
  Company Number: JP-ASTRAZENECA-2013SE94200

PATIENT
  Age: 86 Year
  Sex: Female
  Weight: 55 kg

DRUGS (6)
  1. CRESTOR [Suspect]
     Indication: HYPERCHOLESTEROLAEMIA
     Route: 048
  2. IRBETAN [Concomitant]
     Route: 048
  3. CALBLOCK [Concomitant]
     Route: 048
  4. MEMARY [Concomitant]
     Route: 048
  5. NATRIX [Concomitant]
     Route: 048
  6. EDIROL [Concomitant]
     Route: 048

REACTIONS (1)
  - Interstitial lung disease [Recovering/Resolving]
